FAERS Safety Report 5372760-7 (Version None)
Quarter: 2007Q2

REPORT INFORMATION
  Report Type: 
  Country: None (occurrence: None)
  Receive Date: 20070621
  Receipt Date: 20060928
  Transmission Date: 20071010
  Serious: No
  Sender: FDA-Public Use
  Company Number: 06H-163-0310609-00

PATIENT
  Sex: Male

DRUGS (1)
  1. HEPARIN SODIUM INJECTION [Suspect]
     Indication: DRUG USE FOR UNKNOWN INDICATION
     Dosage: 1800 U/HR, CONTINUOUS, INTRAVENOUS
     Route: 042
     Dates: start: 20060918, end: 20060918

REACTIONS (3)
  - BLEEDING TIME PROLONGED [None]
  - MEDICATION ERROR [None]
  - OVERDOSE [None]
